FAERS Safety Report 6264095-5 (Version None)
Quarter: 2009Q3

REPORT INFORMATION
  Report Type: 
  Country: None (occurrence: None)
  Receive Date: 20090710
  Receipt Date: 20090630
  Transmission Date: 20100115
  Serious: Yes (Hospitalization, Other)
  Sender: FDA-Public Use
  Company Number: US-ELI_LILLY_AND_COMPANY-US200907000162

PATIENT
  Age: 63 Year
  Sex: Male

DRUGS (1)
  1. ZYPREXA [Suspect]

REACTIONS (5)
  - BLINDNESS UNILATERAL [None]
  - HAIR COLOUR CHANGES [None]
  - HOSPITALISATION [None]
  - LIMB IMMOBILISATION [None]
  - LOSS OF LIBIDO [None]
